FAERS Safety Report 8276100-5 (Version None)
Quarter: 2012Q2

REPORT INFORMATION
  Report Type: 
  Country: None (occurrence: None)
  Receive Date: 20120412
  Receipt Date: 20120329
  Transmission Date: 20120825
  Serious: Yes (Life-Threatening)
  Sender: FDA-Public Use
  Company Number: JP-MYLANLABS-2012S1007088

PATIENT
  Age: 39 Year
  Sex: Male
  Weight: 100 kg

DRUGS (9)
  1. NICARDIPINE HCL [Interacting]
     Indication: TACHYCARDIA
     Dosage: 4.17 MICROG/KG/MIN CONTINOUS ADMINISTRATION
     Route: 042
  2. MIDAZOLAM [Interacting]
     Indication: SEDATION
     Dosage: 3 MG/H CONTINUOUS ADMINISTRATION
     Route: 042
  3. DILTIAZEM HCL [Suspect]
     Indication: HYPERTENSION
     Dosage: 4.5 MICROG/KG/MIN CONTINUOUS ADMINISTRATION
     Route: 042
  4. THIAMYLAL SODIUM [Concomitant]
     Indication: INDUCTION OF ANAESTHESIA
     Route: 065
  5. SEVOFLURANE [Interacting]
     Indication: MAINTENANCE OF ANAESTHESIA
     Dosage: 2%
     Route: 065
  6. VECURONIUM BROMIDE [Concomitant]
     Indication: INDUCTION OF ANAESTHESIA
     Route: 065
  7. FENTANYL CITRATE [Concomitant]
     Indication: INDUCTION OF ANAESTHESIA
     Route: 065
  8. DILTIAZEM HCL [Interacting]
     Indication: TACHYCARDIA
     Dosage: 4.5 MICROG/KG/MIN CONTINUOUS ADMINISTRATION
     Route: 042
  9. NICARDIPINE HCL [Interacting]
     Indication: HYPERTENSION
     Dosage: 4.17 MICROG/KG/MIN CONTINOUS ADMINISTRATION
     Route: 042

REACTIONS (4)
  - TOXICITY TO VARIOUS AGENTS [None]
  - CARDIAC ARREST [None]
  - DRUG INTERACTION [None]
  - HYPOXIA [None]
